FAERS Safety Report 14182399 (Version 1)
Quarter: 2017Q4

REPORT INFORMATION
  Report Type: Spontaneous
  Country: CH (occurrence: CH)
  Receive Date: 20171113
  Receipt Date: 20171113
  Transmission Date: 20180321
  Serious: Yes (Death, Hospitalization)
  Sender: FDA-Public Use
  Company Number: CH-ROCHE-2019023

PATIENT
  Age: 23 Year
  Sex: Female

DRUGS (29)
  1. MUPIROCIN. [Concomitant]
     Active Substance: MUPIROCIN
     Route: 065
     Dates: start: 20160519
  2. POSACONAZOLE [Concomitant]
     Active Substance: POSACONAZOLE
  3. CALCIUM ALGINATE [Concomitant]
     Active Substance: CALCIUM ALGINATE
     Route: 065
     Dates: start: 201702
  4. PREDNISONE. [Concomitant]
     Active Substance: PREDNISONE
     Route: 065
     Dates: start: 20160613
  5. ACTEMRA [Suspect]
     Active Substance: TOCILIZUMAB
     Indication: CYTOKINE RELEASE SYNDROME
     Dosage: DOSAGE IS UNCERTAIN.
     Route: 065
  6. METHYLPREDNISOLONE. [Concomitant]
     Active Substance: METHYLPREDNISOLONE
  7. METAMIZOLE [Concomitant]
     Active Substance: METAMIZOLE
  8. COTRIMOXAZOLE [Concomitant]
     Active Substance: SULFAMETHOXAZOLE\TRIMETHOPRIM
     Route: 065
  9. NORADRENALIN [Concomitant]
     Active Substance: NOREPINEPHRINE\NOREPINEPHRINE BITARTRATE
     Route: 065
     Dates: start: 20160605
  10. IRUXOL [Concomitant]
     Route: 065
     Dates: start: 201702
  11. CARMELLOSE [Concomitant]
     Route: 065
     Dates: start: 201702
  12. TISAGENLECLEUCEL. [Suspect]
     Active Substance: TISAGENLECLEUCEL
     Indication: ACUTE LYMPHOCYTIC LEUKAEMIA
     Dosage: DOSAGE IS UNCERTAIN.
     Route: 041
  13. PARACETAMOL [Concomitant]
     Active Substance: ACETAMINOPHEN
     Indication: GASTROENTERITIS
     Route: 065
     Dates: start: 20160519
  14. PARACETAMOL [Concomitant]
     Active Substance: ACETAMINOPHEN
     Indication: PULMONARY OEDEMA
     Route: 065
     Dates: start: 20160630
  15. AMIKACIN [Concomitant]
     Active Substance: AMIKACIN
     Indication: GASTROENTERITIS
     Route: 065
     Dates: start: 20160519
  16. CEFTRIAXONE. [Concomitant]
     Active Substance: CEFTRIAXONE
     Indication: GASTROENTERITIS
     Route: 065
  17. VANCOMYCIN [Concomitant]
     Active Substance: VANCOMYCIN
     Route: 065
     Dates: start: 20170228
  18. AMIKACIN [Concomitant]
     Active Substance: AMIKACIN
     Indication: URINARY TRACT INFECTION
     Route: 065
     Dates: start: 20160901
  19. VANCOMYCIN [Concomitant]
     Active Substance: VANCOMYCIN
     Indication: BACTERAEMIA
     Route: 065
     Dates: start: 20160519
  20. PREDNISONE. [Concomitant]
     Active Substance: PREDNISONE
     Route: 065
     Dates: start: 20170322
  21. CIDOFOVIR. [Concomitant]
     Active Substance: CIDOFOVIR
  22. CYCLOPHOSPHAMIDE. [Suspect]
     Active Substance: CYCLOPHOSPHAMIDE
     Indication: PRODUCT USED FOR UNKNOWN INDICATION
     Route: 065
     Dates: start: 20160517, end: 20160518
  23. FLUDARABINE [Suspect]
     Active Substance: FLUDARABINE PHOSPHATE
     Indication: PRODUCT USED FOR UNKNOWN INDICATION
     Route: 065
     Dates: start: 20160517, end: 20160519
  24. MEROPENEM. [Concomitant]
     Active Substance: MEROPENEM
     Indication: BACTERAEMIA
     Route: 065
     Dates: start: 20160610
  25. ACYCLOVIR. [Concomitant]
     Active Substance: ACYCLOVIR
     Route: 065
     Dates: start: 20160519
  26. MEROPENEM. [Concomitant]
     Active Substance: MEROPENEM
     Indication: GASTROENTERITIS
     Route: 065
     Dates: start: 20160519
  27. ONDANSETRON [Concomitant]
     Active Substance: ONDANSETRON
     Indication: GASTROENTERITIS
  28. HUMAN ALBUMIN [Concomitant]
     Active Substance: ALBUMIN HUMAN
     Route: 065
     Dates: start: 20160605
  29. MORPHINE [Concomitant]
     Active Substance: MORPHINE
     Route: 065
     Dates: start: 20170322

REACTIONS (10)
  - Acute lymphocytic leukaemia [Fatal]
  - Encephalitis viral [Recovered/Resolved]
  - Anaemia [Recovered/Resolved]
  - Decreased appetite [Not Recovered/Not Resolved]
  - Non-cardiac chest pain [Recovered/Resolved]
  - Urinary tract infection [Recovered/Resolved]
  - Malnutrition [Recovered/Resolved]
  - Adenovirus infection [Recovered/Resolved]
  - Bronchial oedema [Recovered/Resolved]
  - Bacteraemia [Recovered/Resolved]

NARRATIVE: CASE EVENT DATE: 20160519
